FAERS Safety Report 6721323-7 (Version None)
Quarter: 2010Q2

REPORT INFORMATION
  Report Type: 
  Country: None (occurrence: None)
  Receive Date: 20100512
  Receipt Date: 20100430
  Transmission Date: 20101027
  Serious: Yes (Other)
  Sender: FDA-Public Use
  Company Number: PHHY2010US28573

PATIENT
  Age: 80 Year
  Sex: Female

DRUGS (2)
  1. EXELON [Suspect]
     Dosage: 3 MG, BID
  2. EXELON [Suspect]
     Dosage: 4.5 MG

REACTIONS (7)
  - COGNITIVE DISORDER [None]
  - CONFUSIONAL STATE [None]
  - HALLUCINATION [None]
  - NAUSEA [None]
  - NERVOUSNESS [None]
  - OBSESSIVE-COMPULSIVE DISORDER [None]
  - PALPITATIONS [None]
